FAERS Safety Report 4714334-4 (Version None)
Quarter: 2005Q3

REPORT INFORMATION
  Report Type: 
  Country: None (occurrence: None)
  Receive Date: 20050714
  Receipt Date: 20050405
  Transmission Date: 20060218
  Serious: Yes (Other)
  Sender: FDA-Public Use
  Company Number: 200511232FR

PATIENT
  Age: 46 Year
  Sex: Male
  Weight: 59 kg

DRUGS (3)
  1. ARAVA [Suspect]
     Indication: BK VIRUS INFECTION
     Route: 048
     Dates: start: 20050101, end: 20050410
  2. RAPAMUNE [Concomitant]
     Indication: RENAL TRANSPLANT
     Route: 048
     Dates: start: 20030408
  3. CELLCEPT [Concomitant]
     Indication: RENAL TRANSPLANT

REACTIONS (9)
  - ABDOMINAL PAIN [None]
  - ANAEMIA [None]
  - BLOOD CREATININE INCREASED [None]
  - CONDITION AGGRAVATED [None]
  - DRUG INTOLERANCE [None]
  - HAEMODIALYSIS [None]
  - MALAISE [None]
  - RENAL FAILURE [None]
  - THROMBOCYTOPENIA [None]
